FAERS Safety Report 22223567 (Version 2)
Quarter: 2023Q2

REPORT INFORMATION
  Report Type: Spontaneous
  Country: US (occurrence: US)
  Receive Date: 20230418
  Receipt Date: 20230619
  Transmission Date: 20230721
  Serious: No
  Sender: FDA-Public Use
  Company Number: US-TEVA-2023-US-2876637

PATIENT
  Age: 72 Year
  Sex: Female

DRUGS (1)
  1. AJOVY [Suspect]
     Active Substance: FREMANEZUMAB-VFRM
     Indication: Migraine with aura
     Dosage: 225MG/0.5ML/1 PEN A MONTH
     Route: 065

REACTIONS (2)
  - Headache [Unknown]
  - Device ineffective [Unknown]

NARRATIVE: CASE EVENT DATE: 20230101
